FAERS Safety Report 19468309 (Version 1)
Quarter: 2021Q2

REPORT INFORMATION
  Report Type: Spontaneous
  Country: US (occurrence: US)
  Receive Date: 20210628
  Receipt Date: 20210628
  Transmission Date: 20210717
  Serious: No
  Sender: FDA-Public Use
  Company Number: US-JNJFOC-20210644507

PATIENT
  Sex: Female

DRUGS (1)
  1. WOMENS ROGAINE UNSCENTED [Suspect]
     Active Substance: MINOXIDIL
     Indication: ALOPECIA
     Dosage: HALF A CUP FULL AS DIRECTED.?PRODUCT LAST TIME USE ON 16/JUN/2021.
     Route: 061
     Dates: start: 20210501

REACTIONS (1)
  - Alopecia [Unknown]
